FAERS Safety Report 19180956 (Version 1)
Quarter: 2021Q2

REPORT INFORMATION
  Report Type: Report from Study
  Country: US (occurrence: US)
  Receive Date: 20210426
  Receipt Date: 20210426
  Transmission Date: 20210717
  Serious: Yes (Other)
  Sender: FDA-Public Use
  Company Number: US-BAYER-2021-121133

PATIENT
  Age: 55 Year
  Sex: Male

DRUGS (1)
  1. STIVARGA [Suspect]
     Active Substance: REGORAFENIB
     Indication: COLORECTAL CANCER
     Dosage: 160 MG, QD X 21 DAYS ON, 7
     Route: 048
     Dates: start: 20210406, end: 20210408

REACTIONS (5)
  - Muscular weakness [Recovered/Resolved]
  - Arthralgia [Not Recovered/Not Resolved]
  - Back pain [Recovered/Resolved]
  - Weight bearing difficulty [None]
  - Vomiting [Recovered/Resolved]

NARRATIVE: CASE EVENT DATE: 20210406
